FAERS Safety Report 4468684-X (Version None)
Quarter: 2004Q4

REPORT INFORMATION
  Report Type: 
  Country: None (occurrence: None)
  Receive Date: 20041007
  Receipt Date: 20041001
  Transmission Date: 20050328
  Serious: Yes (Life-Threatening, Hospitalization)
  Sender: FDA-Public Use
  Company Number: BR-MERCK-0410BRA00030

PATIENT
  Age: 19 Year
  Sex: Female

DRUGS (1)
  1. VIOXX [Suspect]
     Indication: FALL
     Route: 048
     Dates: start: 20031001, end: 20040801

REACTIONS (1)
  - CEREBROVASCULAR ACCIDENT [None]
